FAERS Safety Report 9115671 (Version 2)
Quarter: 2013Q2

REPORT INFORMATION
  Report Type: Spontaneous
  Country: US (occurrence: US)
  Receive Date: 20130225
  Receipt Date: 20130607
  Transmission Date: 20140414
  Serious: Yes (Other)
  Sender: FDA-Public Use
  Company Number: US-BAYER-2013-020890

PATIENT
  Age: 25 Year
  Sex: Female
  Weight: 55.3 kg

DRUGS (3)
  1. MIRENA [Suspect]
     Dosage: 20 MCG/24HR, CONT
     Route: 015
  2. LORTAB [Concomitant]
  3. IBUPROFEN [Concomitant]

REACTIONS (8)
  - Device dislocation [None]
  - Uterine perforation [None]
  - Injury [None]
  - Pain [None]
  - Anhedonia [None]
  - Emotional distress [None]
  - Anxiety [None]
  - General physical health deterioration [None]
